FAERS Safety Report 9535979 (Version 1)
Quarter: 2013Q2

REPORT INFORMATION
  Report Type: Spontaneous
  Country: US (occurrence: None)
  Receive Date: 20130507
  Receipt Date: 20130507
  Transmission Date: 20140414
  Serious: Yes (Other)
  Sender: FDA-Public Use
  Company Number: PHEH2012US024769

PATIENT
  Age: 23 Year
  Sex: Male

DRUGS (5)
  1. AFINITOR [Suspect]
     Indication: TUBEROUS SCLEROSIS
     Route: 048
     Dates: start: 20120918
  2. KEPPRA (LEVETIRACETAM) [Concomitant]
  3. SABRIL (VIGABATRIN) [Concomitant]
  4. MELATONIN (MELATONIN) [Concomitant]
  5. PROBIOTICS (NO INGREDIENTS/ SUBSTANCES) [Concomitant]

REACTIONS (2)
  - Decreased immune responsiveness [None]
  - Nasopharyngitis [None]
